FAERS Safety Report 9481973 (Version 2)
Quarter: 2013Q4

REPORT INFORMATION
  Report Type: Spontaneous
  Country: US (occurrence: US)
  Receive Date: 20130828
  Receipt Date: 20131025
  Transmission Date: 20140711
  Serious: No
  Sender: FDA-Public Use
  Company Number: US-PFIZER INC-2013247645

PATIENT
  Age: 56 Year
  Sex: Female
  Weight: 63.49 kg

DRUGS (14)
  1. GABAPENTIN [Suspect]
     Indication: CONVULSION
     Dosage: 600 MG, 3X/DAY
     Route: 048
     Dates: start: 20130821, end: 201308
  2. GABAPENTIN [Suspect]
     Indication: EPILEPSY
     Dosage: 600 MG, 3X/DAY
     Route: 048
     Dates: start: 20130822, end: 20130825
  3. SYNTHROID [Concomitant]
     Dosage: 25 UG, 1X/DAY
     Route: 048
     Dates: start: 20130502
  4. ASPIRIN [Concomitant]
     Dosage: 325 MG, 1X/DAY
     Route: 048
     Dates: start: 20130502
  5. VICOPROFEN [Concomitant]
     Indication: PAIN
     Dosage: 7.5 MG (HYDROCODONE)-200 MG (IBUPROFEN), DAILY
     Route: 048
     Dates: start: 20130502
  6. METFORMIN [Concomitant]
     Indication: TYPE 2 DIABETES MELLITUS
     Dosage: 500 MG, 3X/DAY
     Route: 048
     Dates: start: 20130502
  7. NEURONTIN [Concomitant]
     Dosage: 600 MG, 3X/DAY
     Route: 048
     Dates: start: 20130502
  8. LISINOPRIL [Concomitant]
     Dosage: 10 MG, 1X/DAY
     Route: 048
     Dates: start: 20130502
  9. NEXIUM [Concomitant]
     Dosage: 40 MG, 1X/DAY
     Route: 048
     Dates: start: 20130502
  10. DICLOFENAC SODIUM [Concomitant]
     Dosage: 75 MG, 2X/DAY
     Route: 048
     Dates: start: 20130502
  11. BACTRIM DS [Concomitant]
     Dosage: 800 MG (SULFAMETHOXAZOLE)-160 MG (TRIMETHOPRIM), 2X/DAY
     Route: 048
     Dates: start: 20130508, end: 20130917
  12. BACTRIM DS [Concomitant]
     Dosage: 800 MG (SULFAMETHOXAZOLE)-160 MG (TRIMETHOPRIM), 2X/DAY
     Route: 048
     Dates: start: 20130927
  13. KEFLEX [Concomitant]
     Dosage: 750 MG, 2X/DAY
     Route: 048
     Dates: start: 20130607, end: 20130917
  14. VITAMIN D3 [Concomitant]
     Dosage: 50000 IU, WEEKLY
     Route: 048
     Dates: start: 20130725, end: 20130917

REACTIONS (9)
  - Hypersensitivity [Unknown]
  - Malaise [Unknown]
  - Pain [Unknown]
  - Neuralgia [Recovered/Resolved]
  - Nausea [Unknown]
  - Pain in extremity [Unknown]
  - Nervousness [Unknown]
  - Gastrointestinal disorder [Unknown]
  - Vomiting [Unknown]
